FAERS Safety Report 4591077-1 (Version None)
Quarter: 2005Q1

REPORT INFORMATION
  Report Type: 
  Country: None (occurrence: None)
  Receive Date: 20050225
  Receipt Date: 20050218
  Transmission Date: 20050727
  Serious: Yes (Hospitalization, Disabling)
  Sender: FDA-Public Use
  Company Number: 200511529GDDC

PATIENT
  Age: 77 Year
  Sex: Female
  Weight: 50 kg

DRUGS (5)
  1. METRONIDAZOLE [Suspect]
     Indication: CLOSTRIDIAL INFECTION
     Route: 048
     Dates: start: 20041224, end: 20050101
  2. PHENYTOIN [Concomitant]
     Indication: EPILEPSY
     Route: 042
     Dates: start: 20041223
  3. OMEPRAZOLE [Concomitant]
     Indication: GASTRITIS
     Route: 048
     Dates: start: 20041101, end: 20041230
  4. FLUCLOXACILLIN [Concomitant]
     Indication: CELLULITIS
     Route: 048
     Dates: start: 20041117, end: 20041119
  5. AUGMENTIN '125' [Concomitant]
     Indication: URINARY TRACT INFECTION
     Route: 048
     Dates: start: 20041209, end: 20041210

REACTIONS (2)
  - PNEUMONIA [None]
  - SOMNOLENCE [None]
